FAERS Safety Report 15819274 (Version 1)
Quarter: 2019Q1

REPORT INFORMATION
  Report Type: Spontaneous
  Country: US (occurrence: US)
  Receive Date: 20190114
  Receipt Date: 20190114
  Transmission Date: 20190417
  Serious: No
  Sender: FDA-Public Use
  Company Number: US-ROCHE-2141888

PATIENT
  Sex: Female

DRUGS (1)
  1. NUTROPIN AQ [Suspect]
     Active Substance: SOMATROPIN
     Indication: PRODUCT USED FOR UNKNOWN INDICATION
     Dosage: NUSPIN 20 INJECTION
     Route: 058
     Dates: start: 20171113, end: 20180614

REACTIONS (3)
  - Device malfunction [Unknown]
  - Product dose omission [Unknown]
  - No adverse event [Unknown]
